FAERS Safety Report 25686202 (Version 2)
Quarter: 2025Q3

REPORT INFORMATION
  Report Type: Report from Study
  Country: JP (occurrence: JP)
  Receive Date: 20250815
  Receipt Date: 20250829
  Transmission Date: 20251020
  Serious: Yes (Death)
  Sender: DAIICHI
  Company Number: JP-DAIICHI SANKYO, INC.-DS-2025-157340-JP

PATIENT
  Sex: Female
  Weight: 59 kg

DRUGS (19)
  1. ENHERTU [Suspect]
     Active Substance: FAM-TRASTUZUMAB DERUXTECAN-NXKI
     Indication: HER2 low breast cancer
     Dosage: 5.4 MG/KG, ONCE EVERY 3 WK
     Route: 041
     Dates: start: 20231025, end: 20231025
  2. ENHERTU [Suspect]
     Active Substance: FAM-TRASTUZUMAB DERUXTECAN-NXKI
     Dosage: 5.4 MG/KG, ONCE EVERY 3 WK
     Route: 041
     Dates: start: 20231117, end: 20231117
  3. ENHERTU [Suspect]
     Active Substance: FAM-TRASTUZUMAB DERUXTECAN-NXKI
     Dosage: 5.4 MG/KG, ONCE EVERY 3 WK
     Route: 041
     Dates: start: 20231208, end: 20231208
  4. ENHERTU [Suspect]
     Active Substance: FAM-TRASTUZUMAB DERUXTECAN-NXKI
     Dosage: 5.4 MG/KG, ONCE EVERY 3 WK
     Route: 041
     Dates: start: 20240105, end: 20240105
  5. ENHERTU [Suspect]
     Active Substance: FAM-TRASTUZUMAB DERUXTECAN-NXKI
     Dosage: 5.4 MG/KG, ONCE EVERY 3 WK
     Route: 041
     Dates: start: 20240126, end: 20240126
  6. ENHERTU [Suspect]
     Active Substance: FAM-TRASTUZUMAB DERUXTECAN-NXKI
     Dosage: 5.4 MG/KG, ONCE EVERY 3 WK
     Route: 041
     Dates: start: 20240216, end: 20240216
  7. ENHERTU [Suspect]
     Active Substance: FAM-TRASTUZUMAB DERUXTECAN-NXKI
     Dosage: 5.4 MG/KG, ONCE EVERY 3 WK
     Route: 041
     Dates: start: 20240308, end: 20240308
  8. ENHERTU [Suspect]
     Active Substance: FAM-TRASTUZUMAB DERUXTECAN-NXKI
     Dosage: 5.4 MG/KG, ONCE EVERY 3 WK
     Route: 041
     Dates: start: 20240329, end: 20240329
  9. ENHERTU [Suspect]
     Active Substance: FAM-TRASTUZUMAB DERUXTECAN-NXKI
     Dosage: 5.4 MG/KG, ONCE EVERY 3 WK
     Route: 041
     Dates: start: 20240419, end: 20240419
  10. ENHERTU [Suspect]
     Active Substance: FAM-TRASTUZUMAB DERUXTECAN-NXKI
     Dosage: 5.4 MG/KG, ONCE EVERY 3 WK
     Route: 041
     Dates: start: 20240510, end: 20240510
  11. ENHERTU [Suspect]
     Active Substance: FAM-TRASTUZUMAB DERUXTECAN-NXKI
     Dosage: 4.7 MG/KG, ONCE EVERY 3 WK
     Route: 041
     Dates: start: 20240604, end: 20240604
  12. ENHERTU [Suspect]
     Active Substance: FAM-TRASTUZUMAB DERUXTECAN-NXKI
     Dosage: 4.7 MG/KG, ONCE EVERY 3 WK
     Route: 041
     Dates: start: 20240628, end: 20240628
  13. ENHERTU [Suspect]
     Active Substance: FAM-TRASTUZUMAB DERUXTECAN-NXKI
     Dosage: 4.7 MG/KG, ONCE EVERY 3 WK
     Route: 041
     Dates: start: 20240719, end: 20240719
  14. ENHERTU [Suspect]
     Active Substance: FAM-TRASTUZUMAB DERUXTECAN-NXKI
     Dosage: 4.7 MG/KG, ONCE EVERY 3 WK
     Route: 041
     Dates: start: 20240809, end: 20240809
  15. ENHERTU [Suspect]
     Active Substance: FAM-TRASTUZUMAB DERUXTECAN-NXKI
     Dosage: 4.7 MG/KG, ONCE EVERY 3 WK
     Route: 041
     Dates: start: 20240830, end: 20240830
  16. NK1 RECEPTOR ANTAGONIST [Concomitant]
     Indication: Antiemetic supportive care
     Route: 065
  17. DEXAMETHASONE SODIUM PHOSPHATE [Concomitant]
     Active Substance: DEXAMETHASONE SODIUM PHOSPHATE
     Indication: Antiemetic supportive care
     Route: 042
  18. DEXAMETHASONE [Concomitant]
     Active Substance: DEXAMETHASONE
     Indication: Antiemetic supportive care
     Route: 048
  19. 5-HT3 RECEPTOR ANTAGONIST (1st GENERATION) [Concomitant]
     Indication: Antiemetic supportive care
     Route: 065

REACTIONS (1)
  - Disease progression [Fatal]
